FAERS Safety Report 20151889 (Version 1)
Quarter: 2021Q4

REPORT INFORMATION
  Report Type: Spontaneous
  Country: US (occurrence: US)
  Receive Date: 20211206
  Receipt Date: 20211206
  Transmission Date: 20220303
  Serious: Yes (Other)
  Sender: FDA-Public Use
  Company Number: US-GLAXOSMITHKLINE-US2021GSK247980

PATIENT
  Sex: Female

DRUGS (8)
  1. RANITIDINE [Suspect]
     Active Substance: RANITIDINE
     Indication: Nausea
     Dosage: UNK, QD
     Route: 065
     Dates: start: 201503, end: 202004
  2. RANITIDINE [Suspect]
     Active Substance: RANITIDINE
     Indication: Muscle spasms
  3. RANITIDINE [Suspect]
     Active Substance: RANITIDINE
     Indication: Irritable bowel syndrome
  4. RANITIDINE [Suspect]
     Active Substance: RANITIDINE
     Indication: Gastric disorder
  5. RANITIDINE [Suspect]
     Active Substance: RANITIDINE
     Indication: Irritable bowel syndrome
     Dosage: UNK, QD
     Route: 065
     Dates: start: 201503, end: 202004
  6. RANITIDINE [Suspect]
     Active Substance: RANITIDINE
     Indication: Nausea
  7. RANITIDINE [Suspect]
     Active Substance: RANITIDINE
     Indication: Muscle spasms
  8. RANITIDINE [Suspect]
     Active Substance: RANITIDINE
     Indication: Gastric disorder

REACTIONS (1)
  - Breast cancer [Unknown]
